FAERS Safety Report 9571588 (Version 2)
Quarter: 2014Q1

REPORT INFORMATION
  Report Type: Report from Study
  Country: US (occurrence: US)
  Receive Date: 20131001
  Receipt Date: 20140129
  Transmission Date: 20141002
  Serious: Yes (Hospitalization, Other)
  Sender: FDA-Public Use
  Company Number: US-ALEXION PHARMACEUTICALS INC.-A201202640

PATIENT
  Age: 7 Year
  Sex: Male

DRUGS (1)
  1. SOLIRIS [Suspect]
     Indication: HAEMOLYTIC URAEMIC SYNDROME
     Dosage: UNK
     Route: 042

REACTIONS (5)
  - Intracranial pressure increased [Recovering/Resolving]
  - Papilloedema [Unknown]
  - Visual impairment [Recovering/Resolving]
  - Activities of daily living impaired [Unknown]
  - Fatigue [Unknown]
